FAERS Safety Report 12585919 (Version 1)
Quarter: 2016Q3

REPORT INFORMATION
  Report Type: Report from Study
  Country: NL (occurrence: NL)
  Receive Date: 20160725
  Receipt Date: 20160725
  Transmission Date: 20161109
  Serious: Yes (Hospitalization)
  Sender: FDA-Public Use
  Company Number: NL-ROCHE-1799969

PATIENT
  Age: 60 Year
  Sex: Female

DRUGS (3)
  1. BEVACIZUMAB [Suspect]
     Active Substance: BEVACIZUMAB
     Indication: BREAST CANCER METASTATIC
     Dosage: DAYS 1 AND 15 EVERY 28 DAYS?LAST DATE OF ADMINISTRATION: 03/MAY/2016
     Route: 042
     Dates: start: 20160112
  2. PACLITAXEL. [Suspect]
     Active Substance: PACLITAXEL
     Indication: BREAST CANCER METASTATIC
     Dosage: ON DAYS 1, 8 AND 15 EVERY 28 DAYS?LAST DATE OF ADMINISTRATION: 03/MAY/2016
     Route: 042
     Dates: start: 20160112
  3. OXYNORM [Concomitant]
     Active Substance: OXYCODONE HYDROCHLORIDE
     Dosage: 4X1
     Route: 065
     Dates: start: 20151120

REACTIONS (1)
  - Pyrexia [Recovered/Resolved]

NARRATIVE: CASE EVENT DATE: 20160507
